FAERS Safety Report 6022834-2 (Version None)
Quarter: 2008Q4

REPORT INFORMATION
  Report Type: 
  Country: None (occurrence: None)
  Receive Date: 20081230
  Receipt Date: 20080724
  Transmission Date: 20090506
  Serious: No
  Sender: FDA-Public Use
  Company Number: US-ABBOTT-08P-163-0460906-00

PATIENT
  Sex: Female
  Weight: 52.664 kg

DRUGS (3)
  1. CEFDINIR [Suspect]
     Indication: SINUSITIS
     Dosage: TOOK 2 TABLETS FROM THIS BOTTLE
     Route: 048
     Dates: start: 20080623
  2. CEFDINIR [Suspect]
     Dosage: TOOK 12 TABLEST FROM THIS BOTTLE
     Route: 048
     Dates: start: 20080624
  3. LEVOFLOXACIN [Suspect]
     Indication: SINUSITIS
     Dosage: TOOK ONLY ONE DOSE
     Route: 048
     Dates: start: 20080601, end: 20080601

REACTIONS (3)
  - DYSPHAGIA [None]
  - PHARYNGEAL OEDEMA [None]
  - URTICARIA [None]
